FAERS Safety Report 4279653-7 (Version None)
Quarter: 2004Q1

REPORT INFORMATION
  Report Type: 
  Country: None (occurrence: None)
  Receive Date: 20040123
  Receipt Date: 20040113
  Transmission Date: 20041129
  Serious: Yes (Hospitalization, Other)
  Sender: FDA-Public Use
  Company Number: US-JNJFOC-20030800793

PATIENT
  Age: 68 Year
  Sex: Female
  Weight: 53.0709 kg

DRUGS (13)
  1. REMICADE [Suspect]
     Dosage: SEE IMAGE
     Dates: start: 20030224
  2. REMICADE [Suspect]
     Dosage: SEE IMAGE
     Dates: start: 20030314
  3. REMICADE [Suspect]
     Dosage: SEE IMAGE
     Dates: start: 20030411
  4. VITAMINS (VITAMINS) [Concomitant]
  5. CALCIUM (CALCIUM) [Concomitant]
  6. SYNTHROID [Concomitant]
  7. EVISTA [Concomitant]
  8. FOLIC ACID [Concomitant]
  9. IMURAN [Concomitant]
  10. PENTASA [Concomitant]
  11. SEREVENT [Concomitant]
  12. PREDNISONE [Concomitant]
  13. PAXIL [Concomitant]

REACTIONS (2)
  - DRUG HYPERSENSITIVITY [None]
  - LUPUS-LIKE SYNDROME [None]
